FAERS Safety Report 8598616-4 (Version None)
Quarter: 2012Q3

REPORT INFORMATION
  Report Type: 
  Country: None (occurrence: None)
  Receive Date: 20120816
  Receipt Date: 20120814
  Transmission Date: 20120928
  Serious: Yes (Other)
  Sender: FDA-Public Use
  Company Number: JP-BIOMARINP-002634

PATIENT
  Age: 13 Year
  Sex: Male

DRUGS (1)
  1. SAPROPTERIN HYDROCHLORIDE [Suspect]
     Indication: PRODUCT USED FOR UNKNOWN INDICATION

REACTIONS (3)
  - TREMOR [None]
  - EYE MOVEMENT DISORDER [None]
  - LOSS OF CONSCIOUSNESS [None]
